FAERS Safety Report 4941093-2 (Version None)
Quarter: 2006Q1

REPORT INFORMATION
  Report Type: 
  Country: None (occurrence: None)
  Receive Date: 20060313
  Receipt Date: 20060303
  Transmission Date: 20060701
  Serious: Yes (Other)
  Sender: FDA-Public Use
  Company Number: 2006UW03682

PATIENT
  Age: 41 Year
  Sex: Female

DRUGS (1)
  1. ZOMIG [Suspect]
     Dosage: SIX TIMES PER MONTH
     Route: 065

REACTIONS (1)
  - MEDIASTINAL FIBROSIS [None]
